FAERS Safety Report 21836837 (Version 5)
Quarter: 2023Q2

REPORT INFORMATION
  Report Type: Report from Study
  Country: JP (occurrence: JP)
  Receive Date: 20230109
  Receipt Date: 20230615
  Transmission Date: 20230722
  Serious: Yes (Hospitalization)
  Sender: FDA-Public Use
  Company Number: JP-ARGENX-2023-ARGX-JP000033

PATIENT
  Age: 53 Year
  Sex: Male
  Weight: 46.2 kg

DRUGS (13)
  1. VYVGART [Suspect]
     Active Substance: EFGARTIGIMOD ALFA-FCAB
     Indication: Myasthenia gravis
     Dosage: 400 MG, 1/WEEK
     Route: 041
     Dates: start: 20220525, end: 20220615
  2. VYVGART [Suspect]
     Active Substance: EFGARTIGIMOD ALFA-FCAB
     Dosage: 400 MG, 1/WEEK
     Route: 041
     Dates: start: 20220706, end: 20220727
  3. VYVGART [Suspect]
     Active Substance: EFGARTIGIMOD ALFA-FCAB
     Dosage: 400 MG, 1/WEEK
     Route: 041
     Dates: start: 20221020, end: 20221110
  4. VYVGART [Suspect]
     Active Substance: EFGARTIGIMOD ALFA-FCAB
     Dosage: UNK
     Route: 041
     Dates: end: 20230118
  5. ELIQUIS [Suspect]
     Active Substance: APIXABAN
     Indication: Product used for unknown indication
     Dosage: 10 MG
     Route: 048
     Dates: start: 20220219, end: 20220920
  6. PREDONINE [Concomitant]
     Active Substance: PREDNISOLONE
     Indication: Myasthenia gravis
     Dosage: 20 MG
     Route: 048
     Dates: start: 20220315, end: 20220427
  7. PREDONINE [Concomitant]
     Active Substance: PREDNISOLONE
     Dosage: 30 MG
     Route: 048
     Dates: start: 20220428, end: 20220714
  8. PREDONINE [Concomitant]
     Active Substance: PREDNISOLONE
     Dosage: 25 MG
     Route: 048
     Dates: start: 20220715, end: 20220721
  9. PREDONINE [Concomitant]
     Active Substance: PREDNISOLONE
     Dosage: 20 MG
     Route: 048
     Dates: start: 20220722
  10. Vasolan [Concomitant]
     Indication: Product used for unknown indication
     Dosage: 120 MG
     Route: 048
     Dates: start: 20220601
  11. POTASSIUM GLUCONATE [Concomitant]
     Active Substance: POTASSIUM GLUCONATE
     Indication: Product used for unknown indication
     Dosage: 5 G
     Route: 048
     Dates: start: 20220602
  12. BISOPROLOL [Concomitant]
     Active Substance: BISOPROLOL
     Indication: Product used for unknown indication
     Dosage: 1.25 MG
     Route: 048
     Dates: start: 20220617
  13. Lopemin [Concomitant]
     Indication: Product used for unknown indication
     Dosage: 2 MG
     Route: 048
     Dates: start: 20220627

REACTIONS (4)
  - Haematoma [Recovering/Resolving]
  - Cardiac failure [Recovered/Resolved]
  - Skin ulcer [Recovering/Resolving]
  - Anaemia [Recovered/Resolved]

NARRATIVE: CASE EVENT DATE: 20220919
